FAERS Safety Report 7820441-X (Version None)
Quarter: 2011Q4

REPORT INFORMATION
  Report Type: 
  Country: None (occurrence: None)
  Receive Date: 20111018
  Receipt Date: 20111012
  Transmission Date: 20120403
  Serious: Yes (Hospitalization, Other)
  Sender: FDA-Public Use
  Company Number: US-AMGEN-USASP2011041626

PATIENT
  Age: 84 Year
  Sex: Female
  Weight: 112 kg

DRUGS (7)
  1. CYTOXAN [Concomitant]
  2. ARANESP [Suspect]
     Indication: RENAL FAILURE
     Dosage: 25 MUG, QWK
     Route: 058
     Dates: start: 20091002, end: 20100105
  3. PREDNISONE [Concomitant]
  4. FERAHEME [Concomitant]
     Indication: IRON DEFICIENCY
     Dosage: UNK
     Dates: start: 20100701
  5. PROCRIT [Suspect]
     Indication: RENAL FAILURE
     Dosage: 70000 IU, QWK
     Route: 058
     Dates: start: 20100105, end: 20110203
  6. INTEGRA [Concomitant]
  7. DANAZOL [Concomitant]

REACTIONS (4)
  - ANTI-ERYTHROPOIETIN ANTIBODY POSITIVE [None]
  - TRANSFUSION REACTION [None]
  - THERAPEUTIC RESPONSE DECREASED [None]
  - APLASIA PURE RED CELL [None]
